FAERS Safety Report 7911024-1 (Version None)
Quarter: 2011Q4

REPORT INFORMATION
  Report Type: 
  Country: None (occurrence: None)
  Receive Date: 20111114
  Receipt Date: 20111109
  Transmission Date: 20120403
  Serious: No
  Sender: FDA-Public Use
  Company Number: US-BIOGENIDEC-2011BI042951

PATIENT
  Age: 48 Year
  Sex: Female

DRUGS (2)
  1. MAXALT [Concomitant]
     Indication: MIGRAINE
  2. TYSABRI [Suspect]
     Indication: MULTIPLE SCLEROSIS
     Route: 042
     Dates: start: 20110225

REACTIONS (2)
  - HEADACHE [None]
  - GAIT DISTURBANCE [None]
